FAERS Safety Report 11729314 (Version 1)
Quarter: 2015Q4

REPORT INFORMATION
  Report Type: Spontaneous
  Country: US (occurrence: US)
  Receive Date: 20151110
  Receipt Date: 20151110
  Transmission Date: 20160304
  Serious: No
  Sender: FDA-Public Use
  Company Number: US-ELI_LILLY_AND_COMPANY-US201201000208

PATIENT
  Sex: Female

DRUGS (1)
  1. FORTEO [Suspect]
     Active Substance: TERIPARATIDE
     Indication: OSTEOPOROSIS
     Dosage: 20 UG, QD
     Route: 065
     Dates: start: 201106, end: 20111121

REACTIONS (10)
  - Screaming [Unknown]
  - Joint swelling [Unknown]
  - Joint injury [Unknown]
  - Peripheral swelling [Unknown]
  - Crying [Unknown]
  - Discomfort [Unknown]
  - Pain [Unknown]
  - Depression [Recovered/Resolved]
  - Mobility decreased [Unknown]
  - Drug dose omission [Unknown]
